FAERS Safety Report 25050156 (Version 1)
Quarter: 2025Q1

REPORT INFORMATION
  Report Type: Spontaneous
  Country: US (occurrence: None)
  Receive Date: 20250307
  Receipt Date: 20250307
  Transmission Date: 20250409
  Serious: Yes (Other)
  Sender: FDA-CTU
  Company Number: None

PATIENT
  Age: 75 Year
  Sex: Female

DRUGS (11)
  1. RITUXAN [Suspect]
     Active Substance: RITUXIMAB
     Indication: Rheumatoid arthritis
     Route: 017
     Dates: start: 20240508
  2. ALENDRONATE [Concomitant]
     Active Substance: ALENDRONATE SODIUM
  3. AMLODIPINE [Concomitant]
     Active Substance: AMLODIPINE BESYLATE
  4. CALTRATE+D [Concomitant]
  5. CHLORTHALIDONE [Concomitant]
     Active Substance: CHLORTHALIDONE
  6. CINNAMON [Concomitant]
     Active Substance: CINNAMON
  7. CRANBERRY [Concomitant]
     Active Substance: CRANBERRY
  8. ELIQUIS [Concomitant]
     Active Substance: APIXABAN
  9. EZETIMIBE [Concomitant]
     Active Substance: EZETIMIBE
  10. HYDROXYCHLOROQUINE [Concomitant]
     Active Substance: HYDROXYCHLOROQUINE
  11. IPRATROPIUM SPR [Concomitant]

REACTIONS (1)
  - Intestinal operation [None]

NARRATIVE: CASE EVENT DATE: 20250204
